FAERS Safety Report 16790581 (Version 3)
Quarter: 2020Q2

REPORT INFORMATION
  Report Type: Spontaneous
  Country: ES (occurrence: ES)
  Receive Date: 20190910
  Receipt Date: 20200520
  Transmission Date: 20200713
  Serious: Yes (Disabling, Other)
  Sender: FDA-Public Use
  Company Number: ES-PFIZER INC-2019369474

PATIENT
  Age: 82 Year
  Sex: Female

DRUGS (5)
  1. AMLODIPINE/VALSARTAN [Interacting]
     Active Substance: AMLODIPINE\VALSARTAN
     Dosage: UNK (160/5 MG WITH BREAKFAST)
  2. OMEPRAZOLE. [Concomitant]
     Active Substance: OMEPRAZOLE
     Dosage: 20 MG, DAILY
  3. SERTRALINE [Interacting]
     Active Substance: SERTRALINE HYDROCHLORIDE
     Dosage: 50 MG, DAILY
  4. AMLODIPINE BESILATE [Suspect]
     Active Substance: AMLODIPINE BESYLATE
     Dosage: 2.5 MG, (WITH DINNER)
  5. BROMAZEPAM [Interacting]
     Active Substance: BROMAZEPAM
     Dosage: 3 MG, DAILY

REACTIONS (2)
  - Parkinsonism [Recovered/Resolved]
  - Potentiating drug interaction [Recovered/Resolved]
